FAERS Safety Report 25506510 (Version 2)
Quarter: 2025Q3

REPORT INFORMATION
  Report Type: Spontaneous
  Country: EU (occurrence: EU)
  Receive Date: 20250702
  Receipt Date: 20250728
  Transmission Date: 20251020
  Serious: Yes (Hospitalization, Other)
  Sender: ELI LILLY AND COMPANY
  Company Number: None

PATIENT
  Age: 71 Year
  Sex: Male
  Weight: 67 kg

DRUGS (17)
  1. GEMZAR [Interacting]
     Active Substance: GEMCITABINE HYDROCHLORIDE
     Indication: Prostate cancer
     Route: 042
     Dates: start: 20241021, end: 202412
  2. GEMZAR [Interacting]
     Active Substance: GEMCITABINE HYDROCHLORIDE
     Indication: Adenocarcinoma pancreas
     Route: 042
     Dates: start: 202501, end: 20250415
  3. GEMZAR [Interacting]
     Active Substance: GEMCITABINE HYDROCHLORIDE
     Indication: Pancreatic carcinoma metastatic
  4. ABRAXANE [Interacting]
     Active Substance: PACLITAXEL
     Indication: Prostate cancer
     Route: 042
     Dates: start: 202410, end: 202412
  5. ABRAXANE [Interacting]
     Active Substance: PACLITAXEL
     Indication: Adenocarcinoma pancreas
     Route: 042
     Dates: start: 20250408
  6. ABRAXANE [Interacting]
     Active Substance: PACLITAXEL
     Indication: Pancreatic carcinoma metastatic
     Route: 042
     Dates: start: 20250415
  7. ARANESP [Suspect]
     Active Substance: DARBEPOETIN ALFA
     Indication: Prostate cancer
     Route: 065
     Dates: start: 202504
  8. ARANESP [Suspect]
     Active Substance: DARBEPOETIN ALFA
     Indication: Adenocarcinoma pancreas
  9. ARANESP [Suspect]
     Active Substance: DARBEPOETIN ALFA
     Indication: Pancreatic carcinoma metastatic
  10. KARDEGIC [Concomitant]
     Active Substance: ASPIRIN DL-LYSINE
     Indication: Product used for unknown indication
  11. BISOPROLOL [Concomitant]
     Active Substance: BISOPROLOL
     Indication: Product used for unknown indication
     Dosage: 2.5 MG, EACH MORNING
  12. IRBESARTAN [Concomitant]
     Active Substance: IRBESARTAN
     Indication: Product used for unknown indication
     Dosage: 150 MG, BID
  13. EZETIMIBE\SIMVASTATIN [Concomitant]
     Active Substance: EZETIMIBE\SIMVASTATIN
     Indication: Product used for unknown indication
     Dosage: 1 DOSAGE FORM, EACH EVENING
  14. INSULIN GLARGINE [Concomitant]
     Active Substance: INSULIN GLARGINE
     Indication: Product used for unknown indication
     Dosage: 10 U, EACH MORNING
  15. INSULIN ASPART [Concomitant]
     Active Substance: INSULIN ASPART
     Indication: Product used for unknown indication
     Dosage: 4 U, TID
  16. ALLOPURINOL [Concomitant]
     Active Substance: ALLOPURINOL
     Indication: Product used for unknown indication
     Dosage: 300 MG, EACH MORNING
  17. PANTOPRAZOLE [Concomitant]
     Active Substance: PANTOPRAZOLE
     Indication: Product used for unknown indication
     Dosage: 20 MG, EACH EVENING

REACTIONS (11)
  - Extremity necrosis [Not Recovered/Not Resolved]
  - Renal injury [Not Recovered/Not Resolved]
  - Nephrotic syndrome [Unknown]
  - Hypertensive nephropathy [Unknown]
  - Neuropathy peripheral [Unknown]
  - Malignant neoplasm progression [Unknown]
  - Thrombotic microangiopathy [Unknown]
  - Hyponatraemia [Unknown]
  - Nephropathy [Unknown]
  - Arterial disorder [Unknown]
  - Drug interaction [Unknown]

NARRATIVE: CASE EVENT DATE: 20250401
